FAERS Safety Report 19313745 (Version 1)
Quarter: 2021Q2

REPORT INFORMATION
  Report Type: Spontaneous
  Country: DE (occurrence: DE)
  Receive Date: 20210527
  Receipt Date: 20210527
  Transmission Date: 20210717
  Serious: Yes (Congenital Anomaly)
  Sender: FDA-Public Use
  Company Number: NVSC2021DE110996

PATIENT
  Age: 1 Day
  Sex: Male
  Weight: 3.82 kg

DRUGS (1)
  1. LAMOTRIGIN [Suspect]
     Active Substance: LAMOTRIGINE
     Indication: FOETAL EXPOSURE DURING PREGNANCY
     Dosage: MATERNAL DOSE: 200 MG, QD
     Route: 064

REACTIONS (3)
  - Foetal exposure during pregnancy [Unknown]
  - Renal aplasia [Unknown]
  - Neonatal tachypnoea [Recovered/Resolved]

NARRATIVE: CASE EVENT DATE: 20201104
